FAERS Safety Report 9324675 (Version 1)
Quarter: 2013Q2

REPORT INFORMATION
  Report Type: Spontaneous
  Country: US (occurrence: US)
  Receive Date: 20130603
  Receipt Date: 20130603
  Transmission Date: 20140414
  Serious: No
  Sender: FDA-Public Use
  Company Number: US-PFIZER INC-2013167710

PATIENT
  Sex: Male

DRUGS (3)
  1. ZOLOFT [Suspect]
     Dosage: UNK
  2. LISINOPRIL [Suspect]
     Dosage: UNK
  3. ASPIRIN [Suspect]
     Dosage: UNK

REACTIONS (5)
  - Rhinorrhoea [Unknown]
  - Lacrimation increased [Unknown]
  - Eye oedema [Unknown]
  - Pruritus [Unknown]
  - Sneezing [Unknown]
